FAERS Safety Report 7229723 (Version 6)
Quarter: 2020Q4

REPORT INFORMATION
  Report Type: Spontaneous
  Country: GB (occurrence: GB)
  Receive Date: 20091223
  Receipt Date: 20201201
  Transmission Date: 20210114
  Serious: Yes (Hospitalization, Other)
  Sender: FDA-Public Use
  Company Number: GXKR2009GB13499

PATIENT
  Age: 16 Month
  Sex: Female

DRUGS (8)
  1. VIGABATRIN. [Interacting]
     Active Substance: VIGABATRIN
     Indication: SEIZURE
     Dosage: 120 MG/KG, QD
     Route: 065
  2. SABRIL [Interacting]
     Active Substance: VIGABATRIN
     Indication: SEIZURE
     Dosage: UNK
     Route: 065
  3. CLONAZEPAM. [Interacting]
     Active Substance: CLONAZEPAM
     Indication: SEIZURE
  4. CLONAZEPAM. [Interacting]
     Active Substance: CLONAZEPAM
     Indication: CONDITION AGGRAVATED
     Dosage: 100 MG/KG, QD
     Route: 065
  5. LEVETIRACETAM. [Suspect]
     Active Substance: LEVETIRACETAM
     Indication: INFANTILE SPASMS
     Dosage: 60 MG/KG, QD
     Route: 065
  6. LEVETIRACETAM. [Interacting]
     Active Substance: LEVETIRACETAM
     Indication: SEIZURE
     Dosage: 30 MG/KG, 1X/DAY
     Route: 065
  7. CLOBAZAM. [Concomitant]
     Active Substance: CLOBAZAM
     Indication: INFANTILE SPASMS
     Dosage: 400 ?G/KG, QD
     Route: 065
  8. CLOBAZAM. [Concomitant]
     Active Substance: CLOBAZAM
     Indication: SEIZURE

REACTIONS (8)
  - Swelling face [Unknown]
  - Bronchiolitis [Unknown]
  - Somnolence [Recovered/Resolved]
  - Drug interaction [Recovered/Resolved]
  - Respiratory syncytial virus bronchiolitis [Unknown]
  - Seizure [Unknown]
  - Coma blister [Recovered/Resolved]
  - Blister [Recovered/Resolved]
